FAERS Safety Report 5425755-9 (Version None)
Quarter: 2007Q3

REPORT INFORMATION
  Report Type: 
  Country: None (occurrence: None)
  Receive Date: 20070731
  Receipt Date: 20070524
  Transmission Date: 20080115
  Serious: No
  Sender: FDA-Public Use
  Company Number: 2007PV031290

PATIENT
  Age: 67 Year
  Sex: Female
  Weight: 111.6 kg

DRUGS (9)
  1. EXENATIDE(EXENATIDE) PEN, DISPOSABLE [Suspect]
     Indication: TYPE 2 DIABETES MELLITUS
     Dosage: 5 UG, 2/D, SUBCUTANEOUS; 10 UG, 2/D, SUBCUTANEOUS, 10 UG, 2/D, SUBCUTANEOUS
     Route: 058
     Dates: start: 20070306, end: 20070101
  2. EXENATIDE(EXENATIDE) PEN, DISPOSABLE [Suspect]
     Indication: TYPE 2 DIABETES MELLITUS
     Dosage: 5 UG, 2/D, SUBCUTANEOUS; 10 UG, 2/D, SUBCUTANEOUS, 10 UG, 2/D, SUBCUTANEOUS
     Route: 058
     Dates: start: 20070207, end: 20070305
  3. EXENATIDE(EXENATIDE) PEN, DISPOSABLE [Suspect]
     Indication: TYPE 2 DIABETES MELLITUS
     Dosage: 5 UG, 2/D, SUBCUTANEOUS; 10 UG, 2/D, SUBCUTANEOUS, 10 UG, 2/D, SUBCUTANEOUS
     Route: 058
     Dates: start: 20070101
  4. EXENATIDE(EXENATIDE) PEN, DISPOSABLE [Suspect]
  5. EXENATIDE(EXENATIDE) PEN, DISPOSABLE [Suspect]
  6. EXENATIDE PEN, DISPOSABLE DEVICE (EXENATIDE PEN) [Concomitant]
  7. METFORMIN HCL [Concomitant]
  8. GLYBURIDE AND METFORMIN HCL [Concomitant]
  9. ACTOS [Concomitant]

REACTIONS (7)
  - BLOOD GLUCOSE INCREASED [None]
  - DECREASED APPETITE [None]
  - DRUG EFFECT DECREASED [None]
  - INJECTION SITE BRUISING [None]
  - NAUSEA [None]
  - WEIGHT DECREASED [None]
  - WOUND [None]
